FAERS Safety Report 5130321-9 (Version None)
Quarter: 2006Q4

REPORT INFORMATION
  Report Type: 
  Country: None (occurrence: None)
  Receive Date: 20061019
  Receipt Date: 20060907
  Transmission Date: 20070319
  Serious: Yes (Hospitalization)
  Sender: FDA-Public Use
  Company Number: HQWYE486308SEP06

PATIENT
  Sex: Female
  Weight: 46 kg

DRUGS (6)
  1. ENBREL [Suspect]
     Indication: RHEUMATOID ARTHRITIS
     Route: 058
     Dates: start: 20051122, end: 20060427
  2. ENBREL [Suspect]
     Route: 058
     Dates: start: 20060504
  3. ISCOTIN [Concomitant]
     Dosage: UNKNOWN
     Route: 048
  4. VOLTAREN [Concomitant]
     Indication: RHEUMATOID ARTHRITIS
     Route: 048
     Dates: start: 20051226
  5. RHEUMATREX [Concomitant]
     Indication: RHEUMATOID ARTHRITIS
     Dosage: UNKNOWN
     Dates: start: 20050106
  6. PREDNISOLONE [Concomitant]
     Indication: RHEUMATOID ARTHRITIS
     Route: 048
     Dates: start: 20060112

REACTIONS (2)
  - DYSPNOEA [None]
  - ERYTHEMA NODOSUM [None]
